FAERS Safety Report 9350492 (Version 1)
Quarter: 2013Q2

REPORT INFORMATION
  Report Type: Spontaneous
  Country: US (occurrence: None)
  Receive Date: 20130613
  Receipt Date: 20130613
  Transmission Date: 20140414
  Serious: Yes (Hospitalization)
  Sender: FDA-Public Use
  Company Number: None

PATIENT
  Age: 79 Year
  Sex: Female

DRUGS (1)
  1. TEMODAR 100MG MERCK [Suspect]
     Indication: BRAIN NEOPLASM
     Dosage: 100MG QD PO
     Route: 048
     Dates: start: 20130412, end: 20130523

REACTIONS (1)
  - Pancytopenia [None]
